FAERS Safety Report 11833579 (Version 2)
Quarter: 2016Q3

REPORT INFORMATION
  Report Type: Spontaneous
  Country: US (occurrence: US)
  Receive Date: 20151214
  Receipt Date: 20160712
  Transmission Date: 20161109
  Serious: Yes (Disabling, Other)
  Sender: FDA-Public Use
  Company Number: US-TEVA-617515USA

PATIENT
  Age: 46 Year
  Sex: Male

DRUGS (3)
  1. LANSOPRAZOLE. [Concomitant]
     Active Substance: LANSOPRAZOLE
  2. CETIRIZINE [Concomitant]
     Active Substance: CETIRIZINE HYDROCHLORIDE
  3. LEVOFLOXACIN. [Suspect]
     Active Substance: LEVOFLOXACIN
     Indication: EPIDIDYMITIS
     Dosage: 750 MG/DAY FOR 21 DAYS
     Route: 065

REACTIONS (21)
  - Polyneuropathy [Unknown]
  - Tendon disorder [Not Recovered/Not Resolved]
  - Fatigue [Unknown]
  - Cognitive disorder [Unknown]
  - Respiratory muscle weakness [Not Recovered/Not Resolved]
  - Muscle atrophy [Unknown]
  - Visual impairment [Unknown]
  - Arthralgia [Unknown]
  - Atrophy [Not Recovered/Not Resolved]
  - Affective disorder [Not Recovered/Not Resolved]
  - Anxiety [Unknown]
  - Myalgia [Unknown]
  - Fibromyalgia [Unknown]
  - Toxicity to various agents [Not Recovered/Not Resolved]
  - Bradycardia [Unknown]
  - Muscular weakness [Not Recovered/Not Resolved]
  - Eye disorder [Unknown]
  - Neuropathy peripheral [Unknown]
  - Gastrointestinal motility disorder [Unknown]
  - Gastrointestinal disorder [Not Recovered/Not Resolved]
  - Tachycardia [Unknown]
